FAERS Safety Report 4895720-9 (Version None)
Quarter: 2005Q4

REPORT INFORMATION
  Report Type: 
  Country: None (occurrence: None)
  Receive Date: 20051223
  Receipt Date: 20050912
  Transmission Date: 20060501
  Serious: No
  Sender: FDA-Public Use
  Company Number: 05P-163-0307873-00

PATIENT
  Age: 73 Year
  Sex: Female
  Weight: 40.3701 kg

DRUGS (5)
  1. HUMIRA [Suspect]
     Indication: RHEUMATOID ARTHRITIS
     Dosage: 40 MG, SUBCUTANEOUS
     Route: 058
     Dates: start: 20050501, end: 20050826
  2. METHOTREXATE SODIUM [Concomitant]
  3. ATENOLOL [Concomitant]
  4. ALENDRONATE SODIUM [Concomitant]
  5. MELOXICAM [Concomitant]

REACTIONS (2)
  - RASH [None]
  - SWELLING FACE [None]
